FAERS Safety Report 25926280 (Version 1)
Quarter: 2025Q4

REPORT INFORMATION
  Report Type: Spontaneous
  Country: US (occurrence: None)
  Receive Date: 20251014
  Receipt Date: 20251014
  Transmission Date: 20260118
  Serious: Yes (Life-Threatening, Hospitalization, Disabling, Other)
  Sender: FDA-CTU
  Company Number: None

PATIENT
  Age: 60 Year
  Sex: Female
  Weight: 72 kg

DRUGS (4)
  1. EFFEXOR [Suspect]
     Active Substance: VENLAFAXINE HYDROCHLORIDE
  2. AMBIEN [Suspect]
     Active Substance: ZOLPIDEM TARTRATE
  3. VALIUM [Suspect]
     Active Substance: DIAZEPAM
     Dosage: OTHER STRENGTH : TAPERING MG MILLIG;?FREQUENCY : 3 TIMES A DAY;?
     Route: 048
  4. TRAZODONE [Concomitant]
     Active Substance: TRAZODONE HYDROCHLORIDE

REACTIONS (8)
  - Delusion [None]
  - Legal problem [None]
  - Homicidal ideation [None]
  - Suicidal behaviour [None]
  - Akathisia [None]
  - Psychotic disorder [None]
  - Withdrawal syndrome [None]
  - Brain injury [None]

NARRATIVE: CASE EVENT DATE: 20240524
